FAERS Safety Report 20754561 (Version 1)
Quarter: 2022Q2

REPORT INFORMATION
  Report Type: Spontaneous
  Country: US (occurrence: None)
  Receive Date: 20220426
  Receipt Date: 20220426
  Transmission Date: 20220720
  Serious: No
  Sender: FDA-Public Use
  Company Number: US-ROCHE-2987581

PATIENT
  Sex: Female

DRUGS (3)
  1. ESBRIET [Suspect]
     Active Substance: PIRFENIDONE
     Indication: Idiopathic pulmonary fibrosis
     Dosage: TAKE 3 CAPSULE (801 MG) BY MOUTH THREE TIMES A DAY AT 8 AM, 2 PM AND 10 PM
     Route: 048
     Dates: start: 20170517
  2. AMOXICILLIN [Concomitant]
     Active Substance: AMOXICILLIN
     Dosage: 500-125M
  3. CLINDAMYCIN [Concomitant]
     Active Substance: CLINDAMYCIN

REACTIONS (1)
  - Gastrointestinal disorder [Unknown]
